FAERS Safety Report 10145054 (Version 1)
Quarter: 2014Q2

REPORT INFORMATION
  Report Type: Report from Study
  Country: NL (occurrence: NL)
  Receive Date: 20140501
  Receipt Date: 20140501
  Transmission Date: 20141212
  Serious: Yes (Hospitalization)
  Sender: FDA-Public Use
  Company Number: NL-ROCHE-1388893

PATIENT
  Age: 68 Year
  Sex: Male
  Weight: 77 kg

DRUGS (5)
  1. DOCETAXEL [Suspect]
     Indication: GASTRIC CANCER
     Route: 042
     Dates: start: 20130320, end: 20130828
  2. BEVACIZUMAB [Suspect]
     Indication: GASTRIC CANCER
     Route: 042
     Dates: start: 20130320, end: 20130828
  3. OXALIPLATIN [Suspect]
     Indication: GASTRIC CANCER
     Route: 042
     Dates: start: 20130320, end: 20130828
  4. CAPECITABINE [Suspect]
     Indication: GASTRIC CANCER
     Dosage: FROM DAY 1-14
     Route: 048
     Dates: start: 20130320, end: 20130828
  5. TRASTUZUMAB [Suspect]
     Indication: GASTRIC CANCER
     Route: 042
     Dates: start: 20130320, end: 20130828

REACTIONS (1)
  - Metastases to central nervous system [Not Recovered/Not Resolved]
